FAERS Safety Report 10075734 (Version 1)
Quarter: 2014Q2

REPORT INFORMATION
  Report Type: Spontaneous
  Country: US (occurrence: None)
  Receive Date: 20140411
  Receipt Date: 20140411
  Transmission Date: 20141212
  Serious: Yes (Hospitalization)
  Sender: FDA-Public Use
  Company Number: None

PATIENT
  Age: 66 Year
  Sex: Female
  Weight: 210 kg

DRUGS (1)
  1. WARFARIN [Suspect]
     Route: 048

REACTIONS (1)
  - Rectal haemorrhage [None]
